FAERS Safety Report 4827848-3 (Version None)
Quarter: 2005Q4

REPORT INFORMATION
  Report Type: 
  Country: None (occurrence: None)
  Receive Date: 20051110
  Receipt Date: 20051103
  Transmission Date: 20060501
  Serious: Yes (Hospitalization, Disabling, Other)
  Sender: FDA-Public Use
  Company Number: USA0511112767

PATIENT
  Age: 66 Year
  Sex: Female

DRUGS (2)
  1. HUMULIN L [Suspect]
     Indication: DIABETES MELLITUS
  2. HUMULIN R [Suspect]
     Indication: DIABETES MELLITUS
     Dosage: 10 U/2 DAY

REACTIONS (3)
  - CARDIAC OPERATION [None]
  - LEG AMPUTATION [None]
  - MACULAR DEGENERATION [None]
